FAERS Safety Report 12217767 (Version 1)
Quarter: 2016Q1

REPORT INFORMATION
  Report Type: Report from Study
  Country: US (occurrence: US)
  Receive Date: 20160329
  Receipt Date: 20160329
  Transmission Date: 20160526
  Serious: Yes (Other)
  Sender: FDA-Public Use
  Company Number: US-ROCHE-1723939

PATIENT
  Sex: Female

DRUGS (8)
  1. GABAPENTIN. [Concomitant]
     Active Substance: GABAPENTIN
     Indication: MUSCLE SPASMS
  2. ESBRIET [Suspect]
     Active Substance: PIRFENIDONE
     Indication: IDIOPATHIC PULMONARY FIBROSIS
     Dosage: 1 PILL THREE TIMES A DAY
     Route: 048
     Dates: start: 20160309
  3. ESBRIET [Suspect]
     Active Substance: PIRFENIDONE
     Dosage: 2 PILLS 3 TIMES A DAY
     Route: 048
     Dates: end: 20160307
  4. ESBRIET [Suspect]
     Active Substance: PIRFENIDONE
     Dosage: 267MG, 3 CAPSULE  THREE TIMES A DAY
     Route: 048
  5. ESBRIET [Suspect]
     Active Substance: PIRFENIDONE
     Dosage: 1 CAPSULE 3 TIMES A DAY
     Route: 048
  6. ESBRIET [Suspect]
     Active Substance: PIRFENIDONE
     Dosage: 2 PILLS IN 3 TIMES IN DAY
     Route: 048
  7. BACTRIM [Suspect]
     Active Substance: SULFAMETHOXAZOLE\TRIMETHOPRIM
     Indication: PRODUCT USED FOR UNKNOWN INDICATION
     Route: 048
  8. OXYGEN. [Concomitant]
     Active Substance: OXYGEN
     Indication: PULMONARY FIBROSIS
     Dosage: AT NIGHT
     Route: 065

REACTIONS (8)
  - Hypersensitivity [Unknown]
  - Sleep disorder [Recovered/Resolved]
  - Eye pruritus [Unknown]
  - Pruritus generalised [Recovered/Resolved]
  - Swollen tongue [Unknown]
  - Drug hypersensitivity [Unknown]
  - Glossodynia [Not Recovered/Not Resolved]
  - Inappropriate schedule of drug administration [Unknown]
